FAERS Safety Report 5936220-4 (Version None)
Quarter: 2008Q4

REPORT INFORMATION
  Report Type: 
  Country: None (occurrence: None)
  Receive Date: 20081030
  Receipt Date: 20070919
  Transmission Date: 20090506
  Serious: No
  Sender: FDA-Public Use
  Company Number: A0683904A

PATIENT
  Sex: Female

DRUGS (1)
  1. SEREVENT [Suspect]
     Indication: DRUG USE FOR UNKNOWN INDICATION
     Dosage: 2PUFF TWICE PER DAY
     Route: 055

REACTIONS (2)
  - FEELING JITTERY [None]
  - MEDICATION ERROR [None]
